FAERS Safety Report 8434821-5 (Version None)
Quarter: 2012Q2

REPORT INFORMATION
  Report Type: 
  Country: None (occurrence: None)
  Receive Date: 20120614
  Receipt Date: 20120604
  Transmission Date: 20120825
  Serious: Yes (Hospitalization, Other)
  Sender: FDA-Public Use
  Company Number: US-BAYER-201036134NA

PATIENT
  Age: 20 Year
  Sex: Female
  Weight: 45 kg

DRUGS (8)
  1. YASMIN [Suspect]
     Indication: ACNE
  2. YAZ [Suspect]
     Indication: PREMENSTRUAL SYNDROME
  3. TYLENOL ALLERGY [Concomitant]
     Indication: SINUS HEADACHE
     Dosage: UNK
     Route: 048
     Dates: start: 20050515
  4. CEPHALEXIN [Concomitant]
     Dosage: 500 MG, UNK
     Route: 048
     Dates: start: 20050422
  5. YASMIN [Suspect]
     Indication: CONTRACEPTION
     Dosage: UNK
     Route: 048
     Dates: start: 20040601, end: 20050401
  6. YAZ [Suspect]
     Indication: CONTRACEPTION
     Dosage: UNK
     Dates: start: 20071201, end: 20080601
  7. YAZ [Suspect]
     Indication: ACNE
     Dosage: UNK
     Dates: start: 20081101, end: 20090101
  8. YASMIN [Suspect]
     Indication: PREMENSTRUAL SYNDROME

REACTIONS (11)
  - DEEP VEIN THROMBOSIS [None]
  - ABDOMINAL DISTENSION [None]
  - ANXIETY [None]
  - PULMONARY EMBOLISM [None]
  - FLATULENCE [None]
  - DYSPEPSIA [None]
  - CHOLECYSTECTOMY [None]
  - SCAR [None]
  - DIARRHOEA [None]
  - CONSTIPATION [None]
  - DEPRESSION [None]
